FAERS Safety Report 16757880 (Version 1)
Quarter: 2019Q3

REPORT INFORMATION
  Report Type: Spontaneous
  Country: NE (occurrence: NE)
  Receive Date: 20190830
  Receipt Date: 20190830
  Transmission Date: 20191005
  Serious: Yes (Hospitalization, Other)
  Sender: FDA-Public Use
  Company Number: NE-SUN PHARMACEUTICAL INDUSTRIES LTD-2019RR-219190

PATIENT
  Age: 28 Year
  Sex: Male

DRUGS (1)
  1. TRAMADOL. [Suspect]
     Active Substance: TRAMADOL
     Indication: BACK PAIN
     Dosage: 1400 MILLIGRAMS IN A SINGLE DOSE
     Route: 048

REACTIONS (8)
  - Seizure [Recovered/Resolved]
  - Disorganised speech [Recovered/Resolved]
  - Respiratory distress [Unknown]
  - Overdose [Unknown]
  - Loss of consciousness [Recovered/Resolved]
  - Intentional product misuse [Unknown]
  - Generalised tonic-clonic seizure [Recovered/Resolved]
  - Fall [Unknown]
